FAERS Safety Report 6380274-0 (Version None)
Quarter: 2009Q3

REPORT INFORMATION
  Report Type: 
  Country: None (occurrence: None)
  Receive Date: 20090929
  Receipt Date: 20090924
  Transmission Date: 20100115
  Serious: Yes (Hospitalization)
  Sender: FDA-Public Use
  Company Number: JP-ROCHE-655873

PATIENT
  Sex: Male

DRUGS (9)
  1. ROCEPHIN [Suspect]
     Indication: PNEUMONIA
     Route: 041
     Dates: start: 20090808, end: 20090813
  2. PREDONINE [Concomitant]
     Dosage: ROUTE: INJECTABLE (ROUTE OTHERWISE SPECIFIED).
     Route: 050
     Dates: start: 20090809, end: 20090813
  3. NEOPHYLLIN [Concomitant]
     Route: 065
     Dates: start: 20090809, end: 20090813
  4. GASTER D [Concomitant]
     Route: 048
     Dates: start: 20080306
  5. SELBEX [Concomitant]
     Route: 048
     Dates: start: 20080306
  6. MUCOSOLVAN [Concomitant]
     Route: 048
     Dates: start: 20000516
  7. UNIPHYL [Concomitant]
     Dosage: FORM: SUSTAINED RELEASE TABLET.DRUG REPORTED AS: UNIPHYL LA.
     Route: 048
     Dates: start: 20021118
  8. ADOAIR [Concomitant]
     Route: 055
     Dates: start: 20080310
  9. SPIRIVA [Concomitant]
     Route: 055
     Dates: start: 20050331

REACTIONS (1)
  - LIVER DISORDER [None]
